FAERS Safety Report 9028938 (Version 1)
Quarter: 2013Q1

REPORT INFORMATION
  Report Type: Spontaneous
  Country: IT (occurrence: IT)
  Receive Date: 20130124
  Receipt Date: 20130124
  Transmission Date: 20140127
  Serious: Yes (Hospitalization)
  Sender: FDA-Public Use
  Company Number: IT-SANOFI-AVENTIS-2013SA004224

PATIENT
  Age: 82 Year
  Sex: Female

DRUGS (8)
  1. FUROSEMIDE [Suspect]
     Indication: CARDIAC FAILURE
     Route: 048
     Dates: start: 19990101, end: 20121018
  2. COUMADIN [Concomitant]
  3. ATORVASTATIN CALCIUM [Concomitant]
  4. BISOPROLOL HEMIFUMARATE [Concomitant]
  5. OMEPRAZOLE [Concomitant]
  6. ENALAPRIL MALEATE [Concomitant]
  7. AMIODARONE HYDROCHLORIDE [Concomitant]
  8. GLYCERYL TRINITRATE [Concomitant]

REACTIONS (1)
  - Presyncope [Recovered/Resolved]
